FAERS Safety Report 14262294 (Version 1)
Quarter: 2017Q4

REPORT INFORMATION
  Report Type: Spontaneous
  Country: SG (occurrence: SG)
  Receive Date: 20171208
  Receipt Date: 20171208
  Transmission Date: 20180321
  Serious: Yes (Life-Threatening, Other)
  Sender: FDA-Public Use
  Company Number: SG-ACCORD-061745

PATIENT
  Age: 54 Year
  Sex: Male

DRUGS (5)
  1. CICLOSPORIN [Suspect]
     Active Substance: CYCLOSPORINE
     Indication: RHEUMATOID ARTHRITIS
     Dosage: 1.5 MG/KG BODY WEIGHT
  2. PREDNISOLONE. [Suspect]
     Active Substance: PREDNISOLONE
     Indication: RHEUMATOID ARTHRITIS
     Dosage: ALSO RECEIVED AT 5 MG EVERY 12 HRS
  3. METHOTREXATE. [Suspect]
     Active Substance: METHOTREXATE
     Indication: RHEUMATOID ARTHRITIS
  4. ADALIMUMAB [Concomitant]
     Active Substance: ADALIMUMAB
  5. LEFLUNOMIDE. [Suspect]
     Active Substance: LEFLUNOMIDE
     Indication: RHEUMATOID ARTHRITIS

REACTIONS (4)
  - Bone tuberculosis [Unknown]
  - Disseminated tuberculosis [Unknown]
  - Meningitis tuberculous [Unknown]
  - Lymph node tuberculosis [Unknown]

NARRATIVE: CASE EVENT DATE: 201508
